FAERS Safety Report 9595137 (Version 2)
Quarter: 2013Q4

REPORT INFORMATION
  Report Type: Spontaneous
  Country: US (occurrence: US)
  Receive Date: 20131004
  Receipt Date: 20131004
  Transmission Date: 20140711
  Serious: Yes (Other)
  Sender: FDA-Public Use
  Company Number: US-NAPPMUNDI-USA-2012-0092576

PATIENT
  Age: 87 Year
  Sex: Male
  Weight: 79.82 kg

DRUGS (1)
  1. BUTRANS [Suspect]
     Indication: PRODUCT USED FOR UNKNOWN INDICATION
     Dosage: 5 MCG, Q1H
     Route: 062
     Dates: start: 20120823, end: 20120824

REACTIONS (2)
  - Convulsion [Unknown]
  - Agitation [Recovered/Resolved]
